FAERS Safety Report 21543540 (Version 2)
Quarter: 2022Q4

REPORT INFORMATION
  Report Type: Spontaneous
  Country: JP (occurrence: JP)
  Receive Date: 20221102
  Receipt Date: 20221118
  Transmission Date: 20230112
  Serious: Yes (Hospitalization)
  Sender: FDA-Public Use
  Company Number: JP-MTPC-MTPC2022-0029283

PATIENT
  Age: 6 Decade
  Sex: Female

DRUGS (4)
  1. CANAGLIFLOZIN [Suspect]
     Active Substance: CANAGLIFLOZIN
     Indication: Diabetes mellitus
     Dosage: 100 MILLIGRAM
     Route: 065
  2. SEMAGLUTIDE [Concomitant]
     Active Substance: SEMAGLUTIDE
     Indication: Diabetes mellitus
     Dosage: 0.25 MILLIGRAM, 1/WEEK
     Route: 058
  3. SEMAGLUTIDE [Concomitant]
     Active Substance: SEMAGLUTIDE
     Dosage: 0.5 MILLIGRAM, 1/WEEK
     Route: 058
  4. INSULIN GLARGINE [Concomitant]
     Active Substance: INSULIN GLARGINE
     Indication: Diabetes mellitus
     Dosage: 10 INTERNATIONAL UNIT, QD
     Route: 058

REACTIONS (4)
  - COVID-19 [Recovering/Resolving]
  - COVID-19 [Recovering/Resolving]
  - Diabetic ketoacidosis [Unknown]
  - Diabetic ketoacidosis [Recovering/Resolving]
